FAERS Safety Report 5679236-8 (Version None)
Quarter: 2008Q1

REPORT INFORMATION
  Report Type: 
  Country: None (occurrence: None)
  Receive Date: 20080325
  Receipt Date: 20080320
  Transmission Date: 20080703
  Serious: Yes (Other)
  Sender: FDA-Public Use
  Company Number: BR-ASTRAZENECA-2008UW05700

PATIENT
  Age: 94 Year
  Sex: Female
  Weight: 55 kg

DRUGS (6)
  1. ARIMIDEX [Suspect]
     Indication: BREAST CANCER FEMALE
     Route: 048
     Dates: end: 20080101
  2. SERTRALINA [Concomitant]
     Indication: DEPRESSION
     Route: 048
  3. ARTROLIVE [Concomitant]
     Indication: OSTEOARTHRITIS
     Route: 048
     Dates: start: 20060901
  4. MICARDIS [Concomitant]
     Indication: HYPERTENSION
     Dosage: 1/2 DAILY
     Route: 048
  5. LORAX [Concomitant]
     Indication: INSOMNIA
     Route: 048
     Dates: start: 19880101
  6. NEOZINE [Concomitant]
     Indication: RESTLESSNESS

REACTIONS (4)
  - DEMENTIA ALZHEIMER'S TYPE [None]
  - RESTLESSNESS [None]
  - WEIGHT DECREASED [None]
  - WEIGHT INCREASED [None]
